FAERS Safety Report 7064494-8 (Version None)
Quarter: 2010Q4

REPORT INFORMATION
  Report Type: 
  Country: None (occurrence: None)
  Receive Date: 20101027
  Receipt Date: 20101020
  Transmission Date: 20110411
  Serious: Yes (Hospitalization, Other)
  Sender: FDA-Public Use
  Company Number: US-PFIZER INC-2010134151

PATIENT
  Sex: Female
  Weight: 69.841 kg

DRUGS (1)
  1. LIPITOR [Suspect]
     Indication: BLOOD CHOLESTEROL
     Dosage: 80 MG, DAILY, 1X/DAY
     Route: 048
     Dates: start: 20070101, end: 20100901

REACTIONS (12)
  - APHAGIA [None]
  - BLOOD CHOLESTEROL DECREASED [None]
  - DYSPHAGIA [None]
  - FASTING [None]
  - FEELING ABNORMAL [None]
  - GASTROINTESTINAL DISORDER [None]
  - HEPATIC ENZYME INCREASED [None]
  - HEPATIC PAIN [None]
  - MALAISE [None]
  - NONSPECIFIC REACTION [None]
  - PANCREATIC DISORDER [None]
  - WEIGHT DECREASED [None]
